FAERS Safety Report 11284395 (Version 3)
Quarter: 2016Q1

REPORT INFORMATION
  Report Type: Spontaneous
  Country: US (occurrence: US)
  Receive Date: 20150720
  Receipt Date: 20160118
  Transmission Date: 20160525
  Serious: Yes (Hospitalization)
  Sender: FDA-Public Use
  Company Number: US-PFIZER INC-2015234736

PATIENT
  Age: 78 Year
  Sex: Female
  Weight: 69.84 kg

DRUGS (7)
  1. HYDROCODONE [Concomitant]
     Active Substance: HYDROCODONE
     Dosage: 5.325 MG, 2X/DAY
  2. LYRICA [Suspect]
     Active Substance: PREGABALIN
     Indication: MUSCLE TIGHTNESS
     Dosage: 200 MG, 2X/DAY
     Route: 048
     Dates: start: 201305
  3. LYRICA [Suspect]
     Active Substance: PREGABALIN
     Indication: NERVE INJURY
     Dosage: 200 MG, 2X/DAY
     Route: 048
  4. HYZAAR [Concomitant]
     Active Substance: HYDROCHLOROTHIAZIDE\LOSARTAN POTASSIUM
     Indication: BLOOD PRESSURE ABNORMAL
     Dosage: UNK
     Dates: start: 20150116
  5. LYRICA [Suspect]
     Active Substance: PREGABALIN
     Indication: PAIN IN EXTREMITY
     Dosage: 200 MG, UNK (DOESN^T ALWAYS TAKE TWO A DAY)
     Route: 048
  6. HYDROCODONE [Concomitant]
     Active Substance: HYDROCODONE
     Indication: PAIN IN EXTREMITY
     Dosage: 200 MG, UNK
  7. SYNTHROID [Concomitant]
     Active Substance: LEVOTHYROXINE SODIUM
     Dosage: UNK

REACTIONS (5)
  - Pain [Not Recovered/Not Resolved]
  - Muscle tightness [Not Recovered/Not Resolved]
  - Motor dysfunction [Not Recovered/Not Resolved]
  - Discomfort [Not Recovered/Not Resolved]
  - Gait disturbance [Not Recovered/Not Resolved]
